FAERS Safety Report 21026907 (Version 1)
Quarter: 2022Q2

REPORT INFORMATION
  Report Type: Spontaneous
  Country: US (occurrence: US)
  Receive Date: 20220630
  Receipt Date: 20220630
  Transmission Date: 20220721
  Serious: No
  Sender: FDA-Public Use
  Company Number: US-Emergent Biosolutions-22000113

PATIENT
  Sex: Female

DRUGS (2)
  1. NARCAN [Suspect]
     Active Substance: NALOXONE HYDROCHLORIDE
     Indication: Overdose
     Dosage: 4 MILLIGRAM, 1 DOSE
     Route: 045
     Dates: start: 20220613, end: 20220613
  2. NUCYNTA [Concomitant]
     Active Substance: TAPENTADOL HYDROCHLORIDE
     Indication: Spinal pain
     Dosage: EXTENDED RELEASE
     Route: 065

REACTIONS (2)
  - Device issue [Unknown]
  - Product label confusion [Unknown]

NARRATIVE: CASE EVENT DATE: 20220613
